FAERS Safety Report 16844100 (Version 3)
Quarter: 2020Q1

REPORT INFORMATION
  Report Type: Spontaneous
  Country: US (occurrence: US)
  Receive Date: 20190924
  Receipt Date: 20200116
  Transmission Date: 20200409
  Serious: Yes (Hospitalization, Other)
  Sender: FDA-Public Use
  Company Number: US-PFIZER INC-2019408968

PATIENT
  Age: 35 Year
  Sex: Female
  Weight: 154.2 kg

DRUGS (6)
  1. XELJANZ XR [Suspect]
     Active Substance: TOFACITINIB CITRATE
     Dosage: 20 MG, ONCE DAILY
     Route: 048
  2. ARMOUR THYROID [Concomitant]
     Active Substance: THYROID, PORCINE
     Dosage: 120 MG, UNK
     Dates: start: 2016
  3. OXCARBAZEPINE. [Concomitant]
     Active Substance: OXCARBAZEPINE
     Dosage: 150 MG, UNK
     Dates: start: 201906
  4. OXYCODONE [Concomitant]
     Active Substance: OXYCODONE
     Dosage: 15 MG, UNK
     Dates: start: 2010
  5. XELJANZ XR [Suspect]
     Active Substance: TOFACITINIB CITRATE
     Indication: RHEUMATOID ARTHRITIS
     Dosage: 11 MG, DAILY
     Route: 048
     Dates: start: 20180801
  6. MORPHINE [Concomitant]
     Active Substance: MORPHINE
     Dosage: 10 MG, UNK
     Dates: start: 2018, end: 201912

REACTIONS (7)
  - Herpes zoster [Recovered/Resolved]
  - Blood iron decreased [Recovering/Resolving]
  - Skin ulcer [Recovered/Resolved]
  - Haemorrhage [Unknown]
  - Off label use [Unknown]
  - Disease recurrence [Recovered/Resolved]
  - Anaemia [Unknown]
